FAERS Safety Report 13145095 (Version 1)
Quarter: 2017Q1

REPORT INFORMATION
  Report Type: Spontaneous
  Country: US (occurrence: US)
  Receive Date: 20170124
  Receipt Date: 20170124
  Transmission Date: 20170428
  Serious: No
  Sender: FDA-Public Use
  Company Number: US-BAYER-2017-011738

PATIENT
  Age: 25 Year
  Sex: Female

DRUGS (1)
  1. MIRENA [Suspect]
     Active Substance: LEVONORGESTREL
     Dosage: 20 MCG/24HR, CONT
     Route: 015
     Dates: end: 20170119

REACTIONS (7)
  - Menorrhagia [None]
  - Device difficult to use [None]
  - Hypomenorrhoea [None]
  - Anxiety [None]
  - Metrorrhagia [None]
  - Tremor [None]
  - Headache [None]

NARRATIVE: CASE EVENT DATE: 2016
